FAERS Safety Report 9791682 (Version 1)
Quarter: 2014Q1

REPORT INFORMATION
  Report Type: Spontaneous
  Country: US (occurrence: US)
  Receive Date: 20140102
  Receipt Date: 20140102
  Transmission Date: 20141002
  Serious: Yes (Other)
  Sender: FDA-Public Use
  Company Number: US-BEH-2013038203

PATIENT
  Sex: Male

DRUGS (1)
  1. HIZENTRA [Suspect]
     Route: 058

REACTIONS (1)
  - Hepatitis viral test positive [Recovered/Resolved]
